FAERS Safety Report 8542916-0 (Version None)
Quarter: 2012Q3

REPORT INFORMATION
  Report Type: 
  Country: None (occurrence: None)
  Receive Date: 20120727
  Receipt Date: 20120718
  Transmission Date: 20120928
  Serious: Yes (Hospitalization, Other)
  Sender: FDA-Public Use
  Company Number: FR-MSD-1207FRA007258

PATIENT

DRUGS (12)
  1. VOGALENE [Concomitant]
     Indication: NAUSEA
     Dosage: 7.5 MG, PRN
     Dates: start: 20111011
  2. DEXERYL CREAM [Concomitant]
     Indication: PRURITUS
     Dosage: UNK, UNKNOWN
     Dates: start: 20110823
  3. ATARAX (ALPRAZOLAM) [Concomitant]
     Indication: PRURITUS
     Dosage: ?50 MG, BID
     Dates: start: 20111206
  4. ATENOLOL [Concomitant]
     Indication: HYPERTENSION
     Dosage: 50 MG, UNK
  5. ACETAMINOPHEN [Concomitant]
     Indication: HEADACHE
     Dosage: UNK UNK, UNKNOWN
     Dates: start: 20110823
  6. ALUMINUM HYDROXIDE AND MAGNESIUM TRISILICATE [Concomitant]
     Indication: DIARRHOEA
     Dosage: 3 G, UNKNOWN
     Dates: start: 20110913
  7. VICTRELIS [Suspect]
     Indication: HEPATITIS C
     Dosage: 800 MG, TID
     Dates: start: 20110719
  8. REBETOL [Suspect]
     Indication: HEPATITIS C
     Dosage: 1200 MG, QD
     Dates: start: 20110615
  9. TIORFAN [Concomitant]
     Indication: DIARRHOEA
     Dosage: 100 MG, QD
     Dates: start: 20110913
  10. SOLIAN [Concomitant]
     Indication: PSYCHIATRIC SYMPTOM
     Dosage: 100 MG, QD
     Dates: start: 20111011
  11. IMODIUM [Concomitant]
     Indication: DIARRHOEA
     Dosage: 2 MG, QD
     Dates: start: 20110823
  12. VIRAFERONPEG [Suspect]
     Indication: HEPATITIS C
     Dosage: 180 MICROGRAM, QW
     Dates: start: 20110615

REACTIONS (2)
  - INTERVERTEBRAL DISC OPERATION [None]
  - INTERVERTEBRAL DISCITIS [None]
